FAERS Safety Report 5065177-6 (Version None)
Quarter: 2006Q3

REPORT INFORMATION
  Report Type: 
  Country: None (occurrence: None)
  Receive Date: 20060706
  Receipt Date: 20050815
  Transmission Date: 20061208
  Serious: Yes (Other)
  Sender: FDA-Public Use
  Company Number: 19957

PATIENT
  Age: 19 Year
  Sex: Female
  Weight: 62.5964 kg

DRUGS (1)
  1. MIDAZOLAM HCL [Suspect]
     Indication: PROPHYLAXIS
     Dosage: 1 MG, SINGLE, IV
     Route: 042
     Dates: start: 20050707

REACTIONS (1)
  - COORDINATION ABNORMAL [None]
